FAERS Safety Report 4952250-3 (Version None)
Quarter: 2006Q1

REPORT INFORMATION
  Report Type: 
  Country: None (occurrence: None)
  Receive Date: 20060315
  Receipt Date: 20060228
  Transmission Date: 20060701
  Serious: Yes (Death)
  Sender: FDA-Public Use
  Company Number: WSDF_00293

PATIENT
  Age: 58 Year
  Sex: Female
  Weight: 70.3075 kg

DRUGS (14)
  1. WINRHO SDF [Suspect]
     Indication: THROMBOCYTOPENIA
     Dosage: 69.5 MCG/KG ONCE
     Dates: start: 20020813, end: 20020813
  2. WINRHO SDF [Suspect]
     Indication: THROMBOCYTOPENIA
     Dates: start: 20020813, end: 20020813
  3. WINRHO SDF [Suspect]
     Indication: THROMBOCYTOPENIA
     Dates: start: 20020813, end: 20020813
  4. WINRHO SDF [Suspect]
     Indication: THROMBOCYTOPENIA
     Dates: start: 20020813, end: 20020813
  5. WINRHO SDF [Suspect]
     Indication: THROMBOCYTOPENIA
     Dates: start: 20020813, end: 20020813
  6. WINRHO SDF [Suspect]
     Indication: THROMBOCYTOPENIA
     Dates: start: 20020813, end: 20020813
  7. WINRHO SDF [Suspect]
     Indication: THROMBOCYTOPENIA
     Dates: start: 20020813, end: 20020813
  8. WINRHO SDF [Suspect]
     Indication: THROMBOCYTOPENIA
     Dates: start: 20020813, end: 20020813
  9. ZEVALIN [Concomitant]
  10. RITUXAN [Concomitant]
  11. PREDNISONE [Concomitant]
  12. WARFARIN SODIUM [Concomitant]
  13. ACETAMINOPHEN [Concomitant]
  14. LORAZEPAM [Concomitant]

REACTIONS (18)
  - ACTIVATED PARTIAL THROMBOPLASTIN TIME PROLONGED [None]
  - ACUTE RESPIRATORY FAILURE [None]
  - ANTI-ERYTHROCYTE ANTIBODY POSITIVE [None]
  - BACTERIAL SEPSIS [None]
  - BACTEROIDES BACTERAEMIA [None]
  - BLOOD CREATININE INCREASED [None]
  - BLOOD POTASSIUM INCREASED [None]
  - BLOOD UREA INCREASED [None]
  - CARDIAC ARREST [None]
  - CONDITION AGGRAVATED [None]
  - DISSEMINATED INTRAVASCULAR COAGULATION [None]
  - GASTROINTESTINAL HAEMORRHAGE [None]
  - GENERAL PHYSICAL HEALTH DETERIORATION [None]
  - INTERNATIONAL NORMALISED RATIO INCREASED [None]
  - INTRAVASCULAR HAEMOLYSIS [None]
  - PROTHROMBIN TIME PROLONGED [None]
  - RESPIRATORY ARREST [None]
  - TRANSFUSION REACTION [None]
